FAERS Safety Report 10239221 (Version 1)
Quarter: 2014Q2

REPORT INFORMATION
  Report Type: Spontaneous
  Country: GR (occurrence: GR)
  Receive Date: 20140616
  Receipt Date: 20140616
  Transmission Date: 20141212
  Serious: Yes (Other)
  Sender: FDA-Public Use
  Company Number: GR-ELI_LILLY_AND_COMPANY-GR201406002287

PATIENT
  Age: 25 Year
  Sex: Female

DRUGS (1)
  1. CECLOR [Suspect]
     Indication: URINARY TRACT INFECTION
     Dosage: 750 MG, UNKNOWN
     Route: 048
     Dates: start: 201404

REACTIONS (1)
  - Hypersensitivity [Recovered/Resolved]
